FAERS Safety Report 9171638 (Version 3)
Quarter: 2014Q1

REPORT INFORMATION
  Report Type: Spontaneous
  Country: US (occurrence: US)
  Receive Date: 20130319
  Receipt Date: 20140124
  Transmission Date: 20141002
  Serious: Yes (Hospitalization)
  Sender: FDA-Public Use
  Company Number: US-TEVA-392583USA

PATIENT
  Sex: Male

DRUGS (1)
  1. AZITHROMYCIN [Suspect]
     Dates: start: 20121006

REACTIONS (5)
  - Heart rate irregular [Unknown]
  - Palpitations [Unknown]
  - Angina pectoris [Unknown]
  - Dyspnoea [Unknown]
  - Dizziness [Unknown]
